FAERS Safety Report 25045866 (Version 1)
Quarter: 2025Q1

REPORT INFORMATION
  Report Type: Report from Study
  Country: US (occurrence: US)
  Receive Date: 20250306
  Receipt Date: 20250306
  Transmission Date: 20250409
  Serious: Yes (Other)
  Sender: NOVARTIS
  Company Number: US-002147023-NVSC2025US036517

PATIENT
  Sex: Female

DRUGS (1)
  1. KESIMPTA [Suspect]
     Active Substance: OFATUMUMAB
     Indication: Relapsing multiple sclerosis
     Dosage: 20 MG, QMO
     Route: 058
     Dates: start: 20230424

REACTIONS (6)
  - Epilepsy [Unknown]
  - Seizure [Unknown]
  - Pain [Not Recovered/Not Resolved]
  - Mood altered [Not Recovered/Not Resolved]
  - Muscular weakness [Unknown]
  - Emotional distress [Unknown]
